FAERS Safety Report 5728174-0 (Version None)
Quarter: 2008Q2

REPORT INFORMATION
  Report Type: 
  Country: None (occurrence: None)
  Receive Date: 20080430
  Receipt Date: 20080422
  Transmission Date: 20081010
  Serious: Yes (Hospitalization)
  Sender: FDA-Public Use
  Company Number: TPA2008A00552

PATIENT
  Age: 63 Year
  Sex: Female

DRUGS (15)
  1. ACTOS [Suspect]
     Dosage: PER ORAL
     Route: 048
  2. KETEK [Concomitant]
  3. ACETYLSALICYLIC ACID SRT [Concomitant]
  4. METFORMIN HCL [Concomitant]
  5. PREDNISONE TAB [Concomitant]
  6. METOPROLOL TARTRATE [Concomitant]
  7. METOCLOPRAMIDE (METOCLOPRAMIDE) [Concomitant]
  8. LEVOTHYROXINE SODIUM [Concomitant]
  9. FERROUS SULFATE TAB [Concomitant]
  10. MULTIVITAMIN [Concomitant]
  11. ETANERCEPT (ETANERCEPT) [Concomitant]
  12. SUCRALFATE [Concomitant]
  13. OMEPRAZOLE [Concomitant]
  14. SODIUM LEVOTHYROXINE (LEVOTHYROXINE SODIUM) [Concomitant]
  15. LORAZEPAM [Concomitant]

REACTIONS (24)
  - ANAEMIA [None]
  - ANGINA PECTORIS [None]
  - ASTHENIA [None]
  - BLOOD PRESSURE DECREASED [None]
  - CHEST PAIN [None]
  - CONFUSIONAL STATE [None]
  - CORONARY ARTERY DISEASE [None]
  - DEHYDRATION [None]
  - FLUID INTAKE REDUCED [None]
  - GASTROINTESTINAL HAEMORRHAGE [None]
  - HEART RATE INCREASED [None]
  - HEPATITIS [None]
  - HYPERGLYCAEMIA [None]
  - HYPONATRAEMIA [None]
  - HYPOXIA [None]
  - LOBAR PNEUMONIA [None]
  - ORAL INTAKE REDUCED [None]
  - PNEUMONIA [None]
  - RENAL FAILURE [None]
  - SENSATION OF HEAVINESS [None]
  - TACHYCARDIA [None]
  - TACHYPNOEA [None]
  - TYPE 2 DIABETES MELLITUS [None]
  - UNRESPONSIVE TO STIMULI [None]
